FAERS Safety Report 19429123 (Version 1)
Quarter: 2021Q2

REPORT INFORMATION
  Report Type: Spontaneous
  Country: GB (occurrence: GB)
  Receive Date: 20210617
  Receipt Date: 20210617
  Transmission Date: 20210717
  Serious: Yes (Disabling)
  Sender: FDA-Public Use
  Company Number: GB-ACCORD-228457

PATIENT
  Age: 72 Year
  Sex: Female
  Weight: 68 kg

DRUGS (17)
  1. ACETYLCYSTEINE. [Concomitant]
     Active Substance: ACETYLCYSTEINE
     Dates: start: 20210406, end: 20210419
  2. IPRATROPIUM [Concomitant]
     Active Substance: IPRATROPIUM
     Dates: start: 20200415, end: 20210406
  3. PANTOPRAZOLE [Concomitant]
     Active Substance: PANTOPRAZOLE
     Dates: start: 20210108
  4. PARACETAMOL [Concomitant]
     Active Substance: ACETAMINOPHEN
     Dosage: TAKE 1 OR 2 UPTO 4 TIMES/DAY
     Dates: start: 20210108
  5. CODEINE [Concomitant]
     Active Substance: CODEINE
     Dates: start: 20210108
  6. CARBOCISTEINE/CARBOCISTEINE LYSINE/CARBOCISTEINE SODIUM [Concomitant]
     Active Substance: CARBOCYSTEINE
     Dosage: TO REDUCE MUCUS ON LUNGS
     Dates: start: 20210312, end: 20210411
  7. FLUTICASONE. [Concomitant]
     Active Substance: FLUTICASONE
     Dates: start: 20210108
  8. IPRATROPIUM [Concomitant]
     Active Substance: IPRATROPIUM
     Dosage: 1 TO 2 TO BE 3 TO 4 TI...
     Route: 055
     Dates: start: 20210514
  9. PREDNISOLONE. [Concomitant]
     Active Substance: PREDNISOLONE
     Dosage: RESCUE PACK. USE AS DIRECTED
     Dates: start: 20210413, end: 20210418
  10. SALMETEROL [Concomitant]
     Active Substance: SALMETEROL
     Route: 055
     Dates: start: 20210108
  11. CLARITHROMYCIN. [Concomitant]
     Active Substance: CLARITHROMYCIN
     Dosage: TO TREA...
     Dates: start: 20210419, end: 20210424
  12. AMOXICILLIN. [Concomitant]
     Active Substance: AMOXICILLIN
     Dates: start: 20210401, end: 20210408
  13. RAMIPRIL. [Suspect]
     Active Substance: RAMIPRIL
     Indication: PRODUCT USED FOR UNKNOWN INDICATION
     Dates: start: 20210525
  14. OMEPRAZOLE. [Concomitant]
     Active Substance: OMEPRAZOLE
     Dosage: BEFORE BREAKFAST
     Dates: start: 20210401, end: 20210406
  15. SPIRIVA [Concomitant]
     Active Substance: TIOTROPIUM BROMIDE MONOHYDRATE
     Dosage: (REPLACE INHALER DEVI...
     Dates: start: 20210406, end: 20210514
  16. RAMIPRIL. [Concomitant]
     Active Substance: RAMIPRIL
     Indication: HYPERTENSION
     Dosage: EVERY MORNING
     Dates: start: 20210520
  17. SALBUTAMOL [Concomitant]
     Active Substance: ALBUTEROL
     Dosage: AS REQUIRED
     Dates: start: 20210108

REACTIONS (3)
  - Throat tightness [Recovering/Resolving]
  - Headache [Unknown]
  - Palpitations [Unknown]

NARRATIVE: CASE EVENT DATE: 20210525
